FAERS Safety Report 6415263-0 (Version None)
Quarter: 2009Q4

REPORT INFORMATION
  Report Type: 
  Country: None (occurrence: None)
  Receive Date: 20091022
  Receipt Date: 20091012
  Transmission Date: 20100525
  Serious: Yes (Other)
  Sender: FDA-Public Use
  Company Number: 2009010717

PATIENT
  Age: 45 Year
  Sex: Male

DRUGS (2)
  1. MODAFINIL [Suspect]
     Indication: NARCOLEPSY
     Dosage: 100 MG, 4 TABLETS DAILY, ORAL 100 MG, 3 TABLETS DAILY, ORAL
     Route: 048
     Dates: start: 20090918, end: 20090918
  2. MODAFINIL [Suspect]
     Indication: NARCOLEPSY
     Dosage: 100 MG, 4 TABLETS DAILY, ORAL 100 MG, 3 TABLETS DAILY, ORAL
     Route: 048
     Dates: start: 20090101

REACTIONS (6)
  - AGITATION [None]
  - IRRITABILITY [None]
  - PAIN [None]
  - PRODUCT SUBSTITUTION ISSUE [None]
  - SENSATION OF HEAVINESS [None]
  - SUICIDAL IDEATION [None]
